FAERS Safety Report 8324844-9 (Version None)
Quarter: 2012Q2

REPORT INFORMATION
  Report Type: 
  Country: None (occurrence: None)
  Receive Date: 20120427
  Receipt Date: 20120413
  Transmission Date: 20120825
  Serious: Yes (Hospitalization)
  Sender: FDA-Public Use
  Company Number: VAL_00750_2012

PATIENT
  Age: 71 Year
  Sex: Female

DRUGS (2)
  1. CALCITRIOL [Suspect]
     Indication: THYROID OPERATION
     Dosage: 0.5 ?G BID ORAL
     Route: 048
     Dates: start: 20110510, end: 20110605
  2. CALCIUM-SANDOZ /00751528/ (CALCIUM-SANDOZ CALCIUM GLUBIONATE) 500 MG ( [Suspect]
     Indication: THYROID OPERATION
     Dosage: ORAL
     Route: 048
     Dates: start: 20110510, end: 20110605

REACTIONS (1)
  - HYPERCALCAEMIA [None]
